FAERS Safety Report 16938495 (Version 1)
Quarter: 2019Q4

REPORT INFORMATION
  Report Type: Spontaneous
  Country: US (occurrence: US)
  Receive Date: 20190828
  Receipt Date: 20190828
  Transmission Date: 20200122
  Serious: Yes (Hospitalization)
  Sender: FDA-Public Use
  Company Number: None

PATIENT
  Age: 67 Year
  Sex: Female
  Weight: 96.16 kg

DRUGS (13)
  1. FISH OIL [Concomitant]
     Active Substance: FISH OIL
  2. RELIV [Concomitant]
  3. RANOLAZINE. [Suspect]
     Active Substance: RANOLAZINE
     Indication: PALPITATIONS
     Route: 048
     Dates: start: 20190801, end: 20190806
  4. FIBERSELECT GUMMIES [Concomitant]
  5. RANOLAZINE. [Suspect]
     Active Substance: RANOLAZINE
     Indication: ANGINA PECTORIS
     Route: 048
     Dates: start: 20190801, end: 20190806
  6. RANOLAZINE. [Suspect]
     Active Substance: RANOLAZINE
     Indication: DYSPEPSIA
     Route: 048
     Dates: start: 20190801, end: 20190806
  7. FENOFIBRATE. [Concomitant]
     Active Substance: FENOFIBRATE
  8. VITAMIN B12 [Concomitant]
     Active Substance: CYANOCOBALAMIN
  9. HYDROCHLOROTHIAZIDE. [Concomitant]
     Active Substance: HYDROCHLOROTHIAZIDE
  10. CALCIUM 600MG WITH VITAMIN D3 [Concomitant]
  11. LEVOCETIRIZINE [Concomitant]
     Active Substance: LEVOCETIRIZINE
  12. VITAMIN C [Concomitant]
     Active Substance: ASCORBIC ACID
  13. SERTRALINE [Concomitant]
     Active Substance: SERTRALINE HYDROCHLORIDE

REACTIONS (11)
  - Headache [None]
  - Dizziness [None]
  - Heart rate increased [None]
  - Asthenia [None]
  - Chest discomfort [None]
  - Malaise [None]
  - Tremor [None]
  - Hyperhidrosis [None]
  - Vertigo [None]
  - Nausea [None]
  - Dyspnoea [None]

NARRATIVE: CASE EVENT DATE: 20190807
